FAERS Safety Report 7585596-3 (Version None)
Quarter: 2011Q2

REPORT INFORMATION
  Report Type: 
  Country: None (occurrence: None)
  Receive Date: 20110603
  Receipt Date: 20110228
  Transmission Date: 20111010
  Serious: No
  Sender: FDA-Public Use
  Company Number: 201102016

PATIENT
  Age: 84 Year
  Sex: Male
  Weight: 81.6475 kg

DRUGS (1)
  1. XIAFLEX [Suspect]
     Indication: DUPUYTREN'S CONTRACTURE
     Dosage: 1 IN 1 D, INTRALESIONAL
     Route: 026
     Dates: start: 20110111, end: 20110111

REACTIONS (2)
  - RASH GENERALISED [None]
  - RASH [None]
